FAERS Safety Report 6513104-4 (Version None)
Quarter: 2009Q4

REPORT INFORMATION
  Report Type: 
  Country: None (occurrence: None)
  Receive Date: 20091222
  Receipt Date: 20091222
  Transmission Date: 20100525
  Serious: Yes (Other)
  Sender: FDA-Public Use
  Company Number: None

PATIENT
  Age: 31 Year
  Sex: Male
  Weight: 98 kg

DRUGS (3)
  1. VANCOMYCIN [Suspect]
     Indication: LUNG ABSCESS
     Dosage: 1250MG Q8H INJ
     Dates: start: 20091215, end: 20091217
  2. VANCOMYCIN [Suspect]
     Indication: STAPHYLOCOCCAL ABSCESS
     Dosage: 1250MG Q8H INJ
     Dates: start: 20091215, end: 20091217
  3. VANCOMYCIN [Suspect]
     Indication: STAPHYLOCOCCAL BACTERAEMIA
     Dosage: 1250MG Q8H INJ
     Dates: start: 20091215, end: 20091217

REACTIONS (1)
  - RENAL FAILURE ACUTE [None]
